FAERS Safety Report 18814715 (Version 1)
Quarter: 2021Q1

REPORT INFORMATION
  Report Type: Spontaneous
  Country: SG (occurrence: SG)
  Receive Date: 20210201
  Receipt Date: 20210201
  Transmission Date: 20210419
  Serious: No
  Sender: FDA-Public Use
  Company Number: SG-LUPIN PHARMACEUTICALS INC.-2021-00918

PATIENT
  Age: 23 Year
  Sex: Male

DRUGS (2)
  1. CEPHALEXIN. [Suspect]
     Active Substance: CEPHALEXIN
     Indication: DRUG PROVOCATION TEST
     Dosage: 375 MILLIGRAM
     Route: 048
  2. CEPHALEXIN. [Suspect]
     Active Substance: CEPHALEXIN
     Dosage: UNK, SKIN PRICK TEST
     Route: 065

REACTIONS (1)
  - Urticaria [Unknown]
